FAERS Safety Report 23347584 (Version 1)
Quarter: 2023Q4

REPORT INFORMATION
  Report Type: Spontaneous
  Country: DE (occurrence: DE)
  Receive Date: 20231228
  Receipt Date: 20231228
  Transmission Date: 20240110
  Serious: Yes (Life-Threatening, Other)
  Sender: FDA-Public Use
  Company Number: DE-AMGEN-DEUSP2023229686

PATIENT
  Age: 34 Year
  Sex: Male

DRUGS (6)
  1. ADALIMUMAB [Suspect]
     Active Substance: ADALIMUMAB\ISOPROPYL ALCOHOL
     Indication: Hidradenitis
     Dosage: UNK
     Route: 065
  2. UPADACITINIB [Suspect]
     Active Substance: UPADACITINIB
     Indication: Hidradenitis
     Dosage: 30 MILLIGRAM, QD
     Route: 065
  3. INFLIXIMAB [Concomitant]
     Active Substance: INFLIXIMAB
     Dosage: UNK
     Route: 065
  4. ANAKINRA [Concomitant]
     Active Substance: ANAKINRA
     Dosage: UNK
     Route: 065
  5. USTEKINUMAB [Concomitant]
     Active Substance: USTEKINUMAB
     Dosage: UNK
     Route: 065
  6. CERTOLIZUMAB PEGOL [Concomitant]
     Active Substance: CERTOLIZUMAB PEGOL
     Dosage: UNK
     Route: 065

REACTIONS (7)
  - Haemophagocytic lymphohistiocytosis [Recovering/Resolving]
  - Herpes zoster meningoencephalitis [Unknown]
  - Varicella zoster pneumonia [Recovering/Resolving]
  - Superinfection bacterial [Unknown]
  - Sepsis [Unknown]
  - Varicella zoster virus infection [Unknown]
  - Drug ineffective [Unknown]
